FAERS Safety Report 4498506-2 (Version None)
Quarter: 2004Q4

REPORT INFORMATION
  Report Type: 
  Country: None (occurrence: None)
  Receive Date: 20041105
  Receipt Date: 20040201
  Transmission Date: 20050328
  Serious: Yes (Death)
  Sender: FDA-Public Use
  Company Number: 163-20785-04020062

PATIENT

DRUGS (2)
  1. THALOMID [Suspect]
     Indication: MALIGNANT MELANOMA
     Dosage: SEE IMAGE
     Route: 048
  2. TEMODAL [Suspect]
     Indication: MALIGNANT MELANOMA
     Dosage: 75 MG/M2, QD FOR 6 WKS W/ 2 WKS OFF BETWEEN CYCLES;  6 WEEK PER 8 WK CYCLES

REACTIONS (1)
  - HAEMORRHAGIC STROKE [None]
